FAERS Safety Report 12258513 (Version 1)
Quarter: 2016Q2

REPORT INFORMATION
  Report Type: Spontaneous
  Country: US (occurrence: US)
  Receive Date: 20160412
  Receipt Date: 20160412
  Transmission Date: 20160815
  Serious: No
  Sender: FDA-Public Use
  Company Number: US-SA-2015SA049042

PATIENT
  Age: 16 Year
  Sex: Male

DRUGS (2)
  1. ALLEGRA [Suspect]
     Active Substance: FEXOFENADINE HYDROCHLORIDE
     Indication: MULTIPLE ALLERGIES
     Dosage: TAKEN FROM - 2 WEEKS AGO
     Route: 048
  2. ALLEGRA [Suspect]
     Active Substance: FEXOFENADINE HYDROCHLORIDE
     Indication: MULTIPLE ALLERGIES
     Dosage: ACCIDENTALLY TOOK AN ALLEGRA 24 HOUR TABLET THIS MORNING AND THEN ANOTHER ONE THIS AFTERNOON
     Route: 048
     Dates: start: 20150414

REACTIONS (2)
  - Overdose [Unknown]
  - Drug ineffective [Unknown]
